FAERS Safety Report 10069678 (Version 1)
Quarter: 2014Q2

REPORT INFORMATION
  Report Type: Spontaneous
  Country: US (occurrence: None)
  Receive Date: 20140409
  Receipt Date: 20140409
  Transmission Date: 20141212
  Serious: Yes (Death)
  Sender: FDA-Public Use
  Company Number: None

PATIENT
  Age: 22 Year
  Sex: Male
  Weight: 74.84 kg

DRUGS (1)
  1. METHADONE [Suspect]
     Indication: DRUG ABUSE
     Route: 048

REACTIONS (1)
  - Overdose [None]
